FAERS Safety Report 4871304-3 (Version None)
Quarter: 2005Q4

REPORT INFORMATION
  Report Type: 
  Country: None (occurrence: None)
  Receive Date: 20051229
  Receipt Date: 20051220
  Transmission Date: 20060501
  Serious: Yes (Hospitalization)
  Sender: FDA-Public Use
  Company Number: 2005136143

PATIENT
  Age: 93 Year
  Sex: Female
  Weight: 68.0396 kg

DRUGS (5)
  1. EXEMESTANE [Suspect]
     Indication: BREAST CANCER
     Dosage: 25 MG (25 MG, 1 IN 1 D), ORAL
     Route: 048
     Dates: start: 20011009
  2. SERZONE [Concomitant]
  3. TAGAMET [Concomitant]
  4. XANAX [Concomitant]
  5. PAPAVERINE HYDROCHLORIDE (PAPAVERINE HYDROCHLORIDE) [Concomitant]

REACTIONS (1)
  - CEREBROVASCULAR ACCIDENT [None]
